FAERS Safety Report 12058229 (Version 1)
Quarter: 2016Q1

REPORT INFORMATION
  Report Type: Report from Study
  Country: US (occurrence: US)
  Receive Date: 20160209
  Receipt Date: 20160209
  Transmission Date: 20160526
  Serious: No
  Sender: FDA-Public Use
  Company Number: US-ABBVIE-15P-163-1487799-00

PATIENT
  Age: 10 Year
  Sex: Female

DRUGS (2)
  1. METHOTREXATE [Suspect]
     Active Substance: METHOTREXATE
     Indication: PRODUCT USED FOR UNKNOWN INDICATION
     Dosage: 75 MG=0.6ML
     Route: 050
  2. HUMIRA [Suspect]
     Active Substance: ADALIMUMAB
     Indication: JUVENILE IDIOPATHIC ARTHRITIS
     Route: 058
     Dates: start: 20150904

REACTIONS (5)
  - Acne [Recovered/Resolved with Sequelae]
  - Cough [Not Recovered/Not Resolved]
  - Oral herpes [Recovered/Resolved]
  - Injection site pruritus [Recovered/Resolved with Sequelae]
  - Injection site pain [Recovered/Resolved with Sequelae]

NARRATIVE: CASE EVENT DATE: 20150904
